FAERS Safety Report 22332035 (Version 1)
Quarter: 2023Q2

REPORT INFORMATION
  Report Type: Report from Study
  Country: US (occurrence: None)
  Receive Date: 20230517
  Receipt Date: 20230517
  Transmission Date: 20230721
  Serious: Yes (Other)
  Sender: FDA-Public Use
  Company Number: US-ROCHE-3349078

PATIENT

DRUGS (14)
  1. RITUXIMAB [Suspect]
     Active Substance: RITUXIMAB
     Indication: Burkitt^s lymphoma
     Dosage: SUBSEQUENT DOSES WAS GIVEN ON 15/SEP/2015,06/OCT/2015, 23/OCT/2015, 13/NOV/2015, 04/DEC/2015.
     Route: 065
     Dates: start: 20150825, end: 20150825
  2. CYCLOPHOSPHAMIDE [Suspect]
     Active Substance: CYCLOPHOSPHAMIDE
     Indication: Burkitt^s lymphoma
     Dosage: SUBSEQUENT DOSES WAS GIVEN ON 19/SEP/2015, 10/OCT/2015,27/OCT/2015,17/NOV/2015,
     Route: 065
     Dates: start: 20150829, end: 20150829
  3. CYCLOPHOSPHAMIDE [Suspect]
     Active Substance: CYCLOPHOSPHAMIDE
     Route: 065
     Dates: start: 20151208, end: 20151208
  4. DOXORUBICIN [Suspect]
     Active Substance: DOXORUBICIN
     Indication: Burkitt^s lymphoma
     Dosage: SUBSEQUENT DOSES WAS GIVEN ON 15/SEP/2015, 06/OCT/2025, 23/OCT/2025, 04/DEC/2015
     Route: 065
     Dates: start: 20150825, end: 20150828
  5. ETOPOSIDE [Suspect]
     Active Substance: ETOPOSIDE
     Indication: Burkitt^s lymphoma
     Dosage: SUBSEQUENT DOSES WAS GIVEN ON 15/SEP/2015, 06/OCT/2015, 23/OCT/2015,13/NOV/2015, 04/DEC/2015
     Route: 065
     Dates: start: 20150825, end: 20150828
  6. FILGRASTIM [Suspect]
     Active Substance: FILGRASTIM
     Indication: Burkitt^s lymphoma
     Dosage: SUBSEQUENT DOSES WAS GIVEN ON11/OCT/2015, 28/OCT/2015
     Route: 065
     Dates: start: 20150830, end: 20150902
  7. FILGRASTIM [Suspect]
     Active Substance: FILGRASTIM
     Route: 065
     Dates: start: 20150920, end: 20150927
  8. FILGRASTIM [Suspect]
     Active Substance: FILGRASTIM
     Route: 065
     Dates: start: 20151113, end: 20151127
  9. FILGRASTIM [Suspect]
     Active Substance: FILGRASTIM
     Route: 065
     Dates: start: 20151209, end: 20151212
  10. METHOTREXATE [Suspect]
     Active Substance: METHOTREXATE
     Indication: Burkitt^s lymphoma
     Dosage: SUBSEQUENT DOSES WAS GIVEN ON 09/OCT/2015, 23/OCT/2015, 27/OCT/2015, 13/NOV/2015, 17/NOV/2015, 04/DE
     Route: 065
     Dates: start: 20151007, end: 20151007
  11. PREDNISONE [Suspect]
     Active Substance: PREDNISONE
     Indication: Burkitt^s lymphoma
     Dosage: SUBSEQUENT DOSES WAS GIVEN ON 15/SEP/2015, 06/OCT/2015, 23/OCT/2015,13/NOV/2015, 08/DEC/2015
     Route: 065
     Dates: start: 20150825, end: 20150829
  12. VINCRISTINE [Suspect]
     Active Substance: VINCRISTINE
     Indication: Burkitt^s lymphoma
     Dosage: SUBSEQUENT DOSE GIVEN ON 18/SEP/2015
     Route: 065
     Dates: start: 20150828, end: 20150828
  13. VINCRISTINE [Suspect]
     Active Substance: VINCRISTINE
     Dosage: SUBSEQUENT DOSE GIVEN ON 23/OCT/2015
     Route: 065
     Dates: start: 20151006, end: 20151009
  14. VINCRISTINE [Suspect]
     Active Substance: VINCRISTINE
     Route: 065
     Dates: start: 20151113, end: 20151116

REACTIONS (2)
  - Febrile neutropenia [Recovered/Resolved]
  - Pneumonia [Recovered/Resolved]

NARRATIVE: CASE EVENT DATE: 20150903
